FAERS Safety Report 12281227 (Version 1)
Quarter: 2016Q2

REPORT INFORMATION
  Report Type: Spontaneous
  Country: GB (occurrence: GB)
  Receive Date: 20160419
  Receipt Date: 20160419
  Transmission Date: 20160815
  Serious: Yes (Hospitalization)
  Sender: FDA-Public Use
  Company Number: GB-TEVA-651666ACC

PATIENT
  Age: 76 Year
  Sex: Male

DRUGS (1)
  1. DOCETAXEL. [Suspect]
     Active Substance: DOCETAXEL
     Indication: BLADDER CANCER
     Route: 065

REACTIONS (3)
  - Neutropenic sepsis [Recovered/Resolved]
  - Mucosal inflammation [Unknown]
  - Abdominal pain [Unknown]
